FAERS Safety Report 8620743-3 (Version None)
Quarter: 2012Q3

REPORT INFORMATION
  Report Type: 
  Country: None (occurrence: None)
  Receive Date: 20120824
  Receipt Date: 20120810
  Transmission Date: 20120928
  Serious: Yes (Other)
  Sender: FDA-Public Use
  Company Number: JP-VERTEX PHARMACEUTICAL INC.-AE-2012-003748

PATIENT

DRUGS (14)
  1. PEG-INTRON [Concomitant]
     Indication: HEPATITIS C
     Route: 058
     Dates: start: 20120215, end: 20120306
  2. PEG-INTRON [Concomitant]
     Route: 058
     Dates: start: 20120313, end: 20120319
  3. DORAL [Concomitant]
     Route: 048
     Dates: end: 20120306
  4. REBETOL [Concomitant]
     Indication: HEPATITIS C
     Dosage: 800 MG, QD
     Route: 048
     Dates: start: 20120215, end: 20120313
  5. REBETOL [Concomitant]
     Dosage: 400 MG, QD
     Route: 048
     Dates: start: 20120508
  6. PEG-INTRON [Concomitant]
     Route: 058
     Dates: start: 20120327, end: 20120410
  7. PEG-INTRON [Concomitant]
     Route: 058
     Dates: start: 20120508
  8. VX-950 [Suspect]
     Indication: HEPATITIS C
  9. ZOLPIDEM [Concomitant]
     Route: 048
     Dates: start: 20120216, end: 20120306
  10. PEG-INTRON [Concomitant]
     Route: 058
     Dates: start: 20120410, end: 20120424
  11. REBETOL [Concomitant]
     Dosage: 200 MG, QD
     Route: 048
     Dates: start: 20120410, end: 20120424
  12. ZOLPIDEM [Concomitant]
     Route: 048
  13. REBETOL [Concomitant]
     Dosage: 600 MG, QD
     Route: 048
     Dates: start: 20120313, end: 20120410
  14. DORAL [Concomitant]
     Route: 048

REACTIONS (3)
  - ANAEMIA [None]
  - NEUTROPHIL COUNT DECREASED [None]
  - WHITE BLOOD CELL COUNT DECREASED [None]
